FAERS Safety Report 18326103 (Version 2)
Quarter: 2020Q4

REPORT INFORMATION
  Report Type: Spontaneous
  Country: US (occurrence: US)
  Receive Date: 20200929
  Receipt Date: 20201028
  Transmission Date: 20210113
  Serious: No
  Sender: FDA-Public Use
  Company Number: US-LEXICON PHARMACEUTICALS, INC-20-1606-00740

PATIENT
  Age: 75 Year
  Sex: Male

DRUGS (2)
  1. XERMELO [Suspect]
     Active Substance: TELOTRISTAT ETHYL
     Indication: CARCINOID SYNDROME
     Dates: start: 20190719
  2. XERMELO [Suspect]
     Active Substance: TELOTRISTAT ETHYL
     Dosage: NOT TAKING IT REGULARLY

REACTIONS (3)
  - Product dose omission issue [Unknown]
  - Decreased appetite [Unknown]
  - Treatment noncompliance [Unknown]
